FAERS Safety Report 7793809-8 (Version None)
Quarter: 2011Q4

REPORT INFORMATION
  Report Type: 
  Country: None (occurrence: None)
  Receive Date: 20111003
  Receipt Date: 20110921
  Transmission Date: 20120403
  Serious: Yes (Other)
  Sender: FDA-Public Use
  Company Number: PHHY2011US66764

PATIENT
  Sex: Female
  Weight: 81.088 kg

DRUGS (10)
  1. LEXAPRO [Concomitant]
  2. METOPROLOL TARTRATE [Concomitant]
  3. HORMONES NOS [Concomitant]
  4. AMLODIPINE BESYLATE [Concomitant]
  5. TOPAL [Concomitant]
  6. ANTIDEPRESSANTS [Concomitant]
  7. FEMARA [Suspect]
     Dosage: 2.5 MG, QD
  8. HYDROXYCHLOROQUINE SULFATE [Concomitant]
  9. ACIPHEX [Concomitant]
  10. PLAQUENIL [Concomitant]

REACTIONS (7)
  - TRIGGER FINGER [None]
  - CONNECTIVE TISSUE DISORDER [None]
  - ARTERITIS [None]
  - HOT FLUSH [None]
  - ARTHRALGIA [None]
  - DRY EYE [None]
  - RASH [None]
